FAERS Safety Report 8152719-7 (Version None)
Quarter: 2012Q1

REPORT INFORMATION
  Report Type: 
  Country: None (occurrence: None)
  Receive Date: 20120103
  Receipt Date: 20111021
  Transmission Date: 20120608
  Serious: No
  Sender: FDA-Public Use
  Company Number: AE-2011-00	2101

PATIENT
  Age: 53 Year
  Sex: Male
  Weight: 98.8842 kg

DRUGS (4)
  1. COPEGUS [Concomitant]
  2. SUPPLEMENTS [Concomitant]
  3. INCIVEK [Suspect]
     Dosage: 2250 MG (750 MG, 3 IN 1 D), ORAL
     Route: 048
     Dates: start: 20110930
  4. PEGASYS [Concomitant]

REACTIONS (2)
  - HAEMORRHOIDS [None]
  - ANORECTAL DISCOMFORT [None]
